FAERS Safety Report 16457926 (Version 1)
Quarter: 2019Q2

REPORT INFORMATION
  Report Type: Spontaneous
  Country: CA (occurrence: CA)
  Receive Date: 20190620
  Receipt Date: 20190620
  Transmission Date: 20190711
  Serious: Yes (Hospitalization)
  Sender: FDA-Public Use
  Company Number: CA-PFIZER INC-2019257081

PATIENT
  Age: 44 Year
  Sex: Female

DRUGS (22)
  1. VORICONAZOLE. [Suspect]
     Active Substance: VORICONAZOLE
     Indication: ACANTHAMOEBA KERATITIS
  2. PREDNISOLONE ACETATE. [Concomitant]
     Active Substance: PREDNISOLONE ACETATE
     Indication: ACANTHAMOEBA KERATITIS
     Dosage: UNK, 4X/DAY
  3. TOBRAMYCIN. [Concomitant]
     Active Substance: TOBRAMYCIN
     Indication: ACANTHAMOEBA KERATITIS
     Dosage: UNK
  4. CHLORHEXIDINE [Concomitant]
     Active Substance: CHLORHEXIDINE
     Indication: UVEITIS
     Dosage: UNK (EVERY 2 HOURS)
  5. GATIFLOXACIN. [Concomitant]
     Active Substance: GATIFLOXACIN
     Indication: ACANTHAMOEBA KERATITIS
     Dosage: UNK, 4X/DAY
  6. DEXAMETHASONE SODIUM PHOSPHATE. [Concomitant]
     Active Substance: DEXAMETHASONE SODIUM PHOSPHATE
     Indication: UVEITIS
     Dosage: UNK, DAILY (NIGHTLY)
  7. MILTEFOSINE [Concomitant]
     Active Substance: MILTEFOSINE
     Indication: ACANTHAMOEBA KERATITIS
     Dosage: 50 MG, UNK
  8. VORICONAZOLE. [Suspect]
     Active Substance: VORICONAZOLE
     Indication: UVEITIS
  9. PREDNISOLONE ACETATE. [Concomitant]
     Active Substance: PREDNISOLONE ACETATE
     Dosage: UNK (EVERY 2 HOURS)
     Route: 061
  10. VORICONAZOLE. [Suspect]
     Active Substance: VORICONAZOLE
     Indication: ACANTHAMOEBA KERATITIS
     Dosage: 200 MG, 2X/DAY
     Route: 048
  11. VORICONAZOLE. [Concomitant]
     Active Substance: VORICONAZOLE
     Indication: UVEITIS
     Dosage: 0.5 MG/ML, UNK (HOURLY)
     Route: 061
  12. PREDNISOLONE ACETATE. [Concomitant]
     Active Substance: PREDNISOLONE ACETATE
     Indication: UVEITIS
     Dosage: UNK (HOURLY)
  13. TOBRAMYCIN. [Concomitant]
     Active Substance: TOBRAMYCIN
     Indication: UVEITIS
  14. MILTEFOSINE [Concomitant]
     Active Substance: MILTEFOSINE
     Indication: UVEITIS
     Dosage: 50 MG, 3X/DAY
  15. VORICONAZOLE. [Concomitant]
     Active Substance: VORICONAZOLE
     Indication: ACANTHAMOEBA KERATITIS
  16. DEXAMETHASONE SODIUM PHOSPHATE. [Concomitant]
     Active Substance: DEXAMETHASONE SODIUM PHOSPHATE
     Indication: ACANTHAMOEBA KERATITIS
  17. HOMATROPINE [Concomitant]
     Active Substance: HOMATROPINE\HOMATROPINE HYDROBROMIDE
     Indication: UVEITIS
     Dosage: UNK, 2X/DAY (TO THE RIGHT EYE)
  18. HOMATROPINE [Concomitant]
     Active Substance: HOMATROPINE\HOMATROPINE HYDROBROMIDE
     Indication: ACANTHAMOEBA KERATITIS
  19. CHLORHEXIDINE [Concomitant]
     Active Substance: CHLORHEXIDINE
     Indication: ACANTHAMOEBA KERATITIS
     Dosage: UNK (HOURLY)
  20. GATIFLOXACIN. [Concomitant]
     Active Substance: GATIFLOXACIN
     Indication: UVEITIS
  21. POLYHEXAMETHYLENE BIGUANIDE HYDROCHLORIDE [Concomitant]
     Active Substance: POLIHEXANIDE HYDROCHLORIDE
     Indication: UVEITIS
     Dosage: UNK (TO THE RIGHT EYE)
  22. POLYHEXAMETHYLENE BIGUANIDE HYDROCHLORIDE [Concomitant]
     Active Substance: POLIHEXANIDE HYDROCHLORIDE
     Indication: ACANTHAMOEBA KERATITIS
     Dosage: UNK (EVERY 2 HOURS)

REACTIONS (5)
  - Electrolyte imbalance [Unknown]
  - Off label use [Recovered/Resolved]
  - Malaise [Unknown]
  - Decreased appetite [Unknown]
  - Product use in unapproved indication [Recovered/Resolved]
